FAERS Safety Report 9082809 (Version 3)
Quarter: 2013Q2

REPORT INFORMATION
  Report Type: Spontaneous
  Country: US (occurrence: US)
  Receive Date: 20130130
  Receipt Date: 20130401
  Transmission Date: 20140414
  Serious: Yes (Disabling)
  Sender: FDA-Public Use
  Company Number: PHEH2013US001405

PATIENT
  Age: 44 Year
  Sex: Female
  Weight: 55.33 kg

DRUGS (5)
  1. GILENYA [Suspect]
     Indication: MULTIPLE SCLEROSIS
     Dosage: 0.5 MG, QD
     Route: 048
     Dates: start: 20120215
  2. AMPYRA [Suspect]
     Dosage: 10 MG, UNK
  3. ZANAFLEX [Concomitant]
     Dosage: 2 MG, UNK
  4. VITAMIN D [Concomitant]
     Dosage: 400 U, UNK
  5. DETROL [Concomitant]
     Route: 048

REACTIONS (4)
  - Muscle spasticity [Unknown]
  - Muscle tightness [Unknown]
  - Gait disturbance [Recovering/Resolving]
  - Insomnia [Not Recovered/Not Resolved]
